FAERS Safety Report 9162034 (Version 1)
Quarter: 2013Q1

REPORT INFORMATION
  Report Type: Spontaneous
  Country: SE (occurrence: None)
  Receive Date: 20130222
  Receipt Date: 20130222
  Transmission Date: 20140127
  Serious: Yes (Hospitalization)
  Sender: FDA-Public Use
  Company Number: SYM-2013-00750

PATIENT
  Age: 47 Year
  Sex: Male

DRUGS (2)
  1. VOXRA [Suspect]
     Indication: DEPRESSION
     Route: 048
     Dates: start: 20110705, end: 20110830
  2. VOXRA [Suspect]
     Indication: PRODUCT USED FOR UNKNOWN INDICATION
     Route: 048
     Dates: start: 20110705, end: 20110830

REACTIONS (1)
  - Grand mal convulsion [None]
